FAERS Safety Report 6078033-1 (Version None)
Quarter: 2009Q1

REPORT INFORMATION
  Report Type: 
  Country: None (occurrence: None)
  Receive Date: 20090213
  Receipt Date: 20090130
  Transmission Date: 20090719
  Serious: Yes (Hospitalization)
  Sender: FDA-Public Use
  Company Number: JP-GENENTECH-274064

PATIENT
  Sex: Male
  Weight: 60 kg

DRUGS (5)
  1. AVASTIN [Suspect]
     Indication: COLON CANCER
     Dosage: 300 MG, Q2W
     Route: 041
     Dates: start: 20080707, end: 20081127
  2. OXALIPLATIN [Concomitant]
     Indication: DRUG USE FOR UNKNOWN INDICATION
     Dosage: 139 MG, UNK
     Dates: start: 20080623
  3. FLUOROURACIL [Concomitant]
     Indication: DRUG USE FOR UNKNOWN INDICATION
     Dosage: 650 MG, UNK
     Dates: start: 20080623
  4. FLUOROURACIL [Concomitant]
     Dosage: 975 MG, UNK
     Dates: start: 20080623
  5. CALCIUM LEVOFOLINATE [Concomitant]
     Indication: DRUG USE FOR UNKNOWN INDICATION
     Dosage: 160 MG, UNK
     Dates: start: 20080623

REACTIONS (1)
  - SHOCK [None]
